FAERS Safety Report 4914198-X (Version None)
Quarter: 2006Q1

REPORT INFORMATION
  Report Type: 
  Country: None (occurrence: None)
  Receive Date: 20060213
  Receipt Date: 20060127
  Transmission Date: 20060701
  Serious: Yes (Hospitalization)
  Sender: FDA-Public Use
  Company Number: 221886

PATIENT
  Age: 57 Year
  Sex: Female
  Weight: 92 kg

DRUGS (5)
  1. AVASTIN [Suspect]
     Indication: COLON CANCER
     Dosage: 652 MG, Q3W, INTRAVENOUS
     Route: 042
     Dates: start: 20050418
  2. OXALIPLATIN (OXALIPLATIN) [Suspect]
     Indication: COLON CANCER
     Dosage: 155 MG, Q2W, INTRAVENOUS
     Route: 042
     Dates: start: 20050418
  3. LEUCOVORIN CALCIUM [Suspect]
     Indication: COLON CANCER
     Dosage: 366 MG, Q2W, INTRAVENOUS
     Route: 042
     Dates: start: 20050418
  4. FLUOROURACIL [Suspect]
     Indication: COLON CANCER
     Dosage: 1000 MG, Q2W, INTRAVENOUS
     Route: 042
     Dates: start: 20050418
  5. MULTIVITAMIN (MULTIVITAMINS NOS) [Concomitant]

REACTIONS (3)
  - CATHETER RELATED INFECTION [None]
  - PYREXIA [None]
  - WHITE BLOOD CELL COUNT INCREASED [None]
